FAERS Safety Report 5563986-8 (Version None)
Quarter: 2007Q4

REPORT INFORMATION
  Report Type: 
  Country: None (occurrence: None)
  Receive Date: 20071217
  Receipt Date: 20071212
  Transmission Date: 20080405
  Serious: Yes (Death, Hospitalization)
  Sender: FDA-Public Use
  Company Number: JP-ALLERGAN-0712115US

PATIENT
  Sex: Male

DRUGS (6)
  1. BOTOX [Suspect]
     Indication: MUSCLE SPASMS
     Dosage: 120 UNITS, SINGLE
     Route: 030
     Dates: start: 20071114, end: 20071114
  2. BOTOX [Suspect]
     Indication: MUSCLE SPASMS
     Dosage: 120 UNITS, SINGLE
     Route: 030
     Dates: start: 20071114, end: 20071114
  3. BOTOX [Suspect]
     Dosage: 120 UNITS, SINGLE
     Route: 030
     Dates: start: 20070821, end: 20070821
  4. BOTOX [Suspect]
     Dosage: 120 UNITS, SINGLE
     Route: 030
     Dates: start: 20070821, end: 20070821
  5. HUSCODE [Concomitant]
     Indication: BRONCHITIS CHRONIC
     Dosage: 27 MG, QD
     Route: 048
     Dates: end: 20071129
  6. HUSCODE [Concomitant]
     Dosage: 27 MG, QD
     Route: 048
     Dates: start: 20071203, end: 20071209

REACTIONS (2)
  - BRONCHITIS [None]
  - EMPHYSEMA [None]
